FAERS Safety Report 21995170 (Version 1)
Quarter: 2023Q1

REPORT INFORMATION
  Report Type: Spontaneous
  Country: US (occurrence: None)
  Receive Date: 20230214
  Receipt Date: 20230214
  Transmission Date: 20230417
  Serious: No
  Sender: FDA-Public Use
  Company Number: None

PATIENT
  Age: 48 Year
  Sex: Female
  Weight: 81.9 kg

DRUGS (1)
  1. EMGALITY [Suspect]
     Active Substance: GALCANEZUMAB-GNLM
     Indication: Migraine without aura
     Dosage: OTHER FREQUENCY : LOADING DOSE;?
     Route: 058
     Dates: start: 20230126

REACTIONS (2)
  - Injection site pruritus [None]
  - Injection site bruising [None]

NARRATIVE: CASE EVENT DATE: 20230127
